FAERS Safety Report 9071821 (Version 1)
Quarter: 2013Q1

REPORT INFORMATION
  Report Type: Report from Study
  Country: US (occurrence: US)
  Receive Date: 20130129
  Receipt Date: 20130129
  Transmission Date: 20140127
  Serious: No
  Sender: FDA-Public Use
  Company Number: US-ABBOTT-12P-163-0932369-00

PATIENT
  Age: 55 Year
  Sex: Female

DRUGS (17)
  1. HUMIRA 40 MG/0.8 ML PEN [Suspect]
     Indication: RHEUMATOID ARTHRITIS
     Dates: start: 201203
  2. FOLIC ACID [Concomitant]
     Indication: PRODUCT USED FOR UNKNOWN INDICATION
  3. BROVANA [Concomitant]
     Indication: DYSPNOEA
     Dosage: 15MCG/2ML TWICE A DAY
  4. NISOLDIPINE ER [Concomitant]
     Indication: RAYNAUD^S PHENOMENON
     Dosage: 34MG DAILY
  5. LASIX [Concomitant]
     Indication: INFLAMMATION
     Dosage: IN THE MORNING
  6. OMEPRAZOLE ER [Concomitant]
     Indication: GASTROOESOPHAGEAL REFLUX DISEASE
     Dosage: AT BEDTIME
  7. MOBIC [Concomitant]
     Indication: PAIN
  8. ZOLOFT [Concomitant]
     Indication: BIPOLAR DISORDER
  9. LEVOTHYROXINE [Concomitant]
     Indication: HYPOTHYROIDISM
     Dosage: 175MCG DAILY
  10. PREDNISONE [Concomitant]
     Indication: INFLAMMATION
     Dosage: 5MG DAILY
  11. REQUIP [Concomitant]
     Indication: RESTLESS LEGS SYNDROME
  12. AMBIEN [Concomitant]
     Indication: INSOMNIA
     Dosage: AT BEDTIME
  13. METHOTREXATE [Concomitant]
     Indication: RHEUMATOID ARTHRITIS
  14. XANAX [Concomitant]
     Indication: ANXIETY
     Dosage: AT BEDTIME AS NEEDED
  15. CALCIUM +D [Concomitant]
     Indication: PRODUCT USED FOR UNKNOWN INDICATION
     Dosage: DAILY
  16. POTASSIUM [Concomitant]
     Indication: PRODUCT USED FOR UNKNOWN INDICATION
     Dosage: DAILY
  17. ERALISE [Concomitant]
     Indication: PAIN

REACTIONS (2)
  - Fatigue [Not Recovered/Not Resolved]
  - Dry mouth [Not Recovered/Not Resolved]
